FAERS Safety Report 19051608 (Version 1)
Quarter: 2021Q1

REPORT INFORMATION
  Report Type: Spontaneous
  Country: US (occurrence: US)
  Receive Date: 20210324
  Receipt Date: 20210324
  Transmission Date: 20210420
  Serious: No
  Sender: FDA-Public Use
  Company Number: US-DRREDDYS-USA/USA/21/0132658

PATIENT
  Age: 30 Year
  Sex: Female

DRUGS (1)
  1. ZENATANE [Suspect]
     Active Substance: ISOTRETINOIN
     Indication: ACNE
     Dosage: RMA ISSUE DATE:8/26/2020 5:20:23 PM,10/5/2020 11:57:19 AM,11/4/2020 4:22:48 PM AND 12/10/2020 1:49:3
     Route: 048

REACTIONS (1)
  - Adverse drug reaction [Unknown]
